FAERS Safety Report 4446053-6 (Version None)
Quarter: 2004Q3

REPORT INFORMATION
  Report Type: 
  Country: None (occurrence: None)
  Receive Date: 20040910
  Receipt Date: 20040902
  Transmission Date: 20050211
  Serious: Yes (Other)
  Sender: FDA-Public Use
  Company Number: CH-GLAXOSMITHKLINE-B0344863A

PATIENT
  Sex: Male

DRUGS (1)
  1. ZENTEL [Suspect]
     Indication: ECHINOCOCCIASIS

REACTIONS (1)
  - GRANULOCYTOSIS [None]
